FAERS Safety Report 10900193 (Version 1)
Quarter: 2015Q1

REPORT INFORMATION
  Report Type: Spontaneous
  Country: JP (occurrence: JP)
  Receive Date: 20150310
  Receipt Date: 20150310
  Transmission Date: 20150721
  Serious: Yes (Other)
  Sender: FDA-Public Use
  Company Number: JP-ASTRAZENECA-2015SE21522

PATIENT

DRUGS (1)
  1. BYETTA [Suspect]
     Active Substance: EXENATIDE
     Dosage: DOSE UNKNOWN
     Route: 058

REACTIONS (1)
  - Cholangitis [Unknown]
